FAERS Safety Report 22273470 (Version 3)
Quarter: 2023Q2

REPORT INFORMATION
  Report Type: Spontaneous
  Country: US (occurrence: US)
  Receive Date: 20230502
  Receipt Date: 20230509
  Transmission Date: 20230722
  Serious: No
  Sender: FDA-Public Use
  Company Number: US-AMGEN-USASP2023074128

PATIENT
  Age: 13 Year
  Sex: Male

DRUGS (1)
  1. AMJEVITA [Suspect]
     Active Substance: ADALIMUMAB-ATTO
     Indication: Juvenile spondyloarthritis
     Dosage: 40 MILLIGRAM, Q2WK
     Route: 058
     Dates: start: 20230331

REACTIONS (3)
  - Device difficult to use [Unknown]
  - Psychological trauma [Unknown]
  - Injection site bruising [Unknown]

NARRATIVE: CASE EVENT DATE: 20230401
